FAERS Safety Report 6048459-0 (Version None)
Quarter: 2009Q1

REPORT INFORMATION
  Report Type: 
  Country: None (occurrence: None)
  Receive Date: 20090123
  Receipt Date: 20090116
  Transmission Date: 20090719
  Serious: Yes (Death, Hospitalization)
  Sender: FDA-Public Use
  Company Number: A0764677A

PATIENT
  Age: 64 Year
  Sex: Female
  Weight: 113.6 kg

DRUGS (7)
  1. AVANDIA [Suspect]
     Dosage: 2MG PER DAY
     Route: 048
     Dates: start: 20040101, end: 20060331
  2. PRINIVIL [Concomitant]
  3. DIAZEPAM [Concomitant]
  4. NOVOLOG [Concomitant]
  5. CARTIA XT [Concomitant]
  6. LASIX [Concomitant]
  7. ZOCOR [Concomitant]

REACTIONS (2)
  - CEREBROVASCULAR ACCIDENT [None]
  - DEATH [None]
